FAERS Safety Report 5671287-2 (Version None)
Quarter: 2008Q1

REPORT INFORMATION
  Report Type: 
  Country: None (occurrence: None)
  Receive Date: 20080318
  Receipt Date: 20080311
  Transmission Date: 20080703
  Serious: Yes (Hospitalization)
  Sender: FDA-Public Use
  Company Number: FR-PFIZER INC-2008017275

PATIENT
  Sex: Female
  Weight: 93 kg

DRUGS (2)
  1. CHAMPIX [Suspect]
     Indication: EX-SMOKER
     Dosage: DAILY DOSE:2MG-FREQ:BID: EVERY DAY
     Route: 048
  2. TAHOR [Concomitant]
     Indication: DYSLIPIDAEMIA
     Route: 048

REACTIONS (1)
  - PNEUMOTHORAX [None]
